FAERS Safety Report 9341207 (Version 3)
Quarter: 2013Q3

REPORT INFORMATION
  Report Type: Report from Study
  Country: CA (occurrence: CA)
  Receive Date: 20130611
  Receipt Date: 20130731
  Transmission Date: 20140515
  Serious: Yes (Other)
  Sender: FDA-Public Use
  Company Number: CA-ROCHE-1231243

PATIENT
  Sex: Female
  Weight: 54 kg

DRUGS (8)
  1. HERCEPTIN [Suspect]
     Indication: BREAST CANCER METASTATIC
     Route: 042
     Dates: start: 20130508
  2. HERCEPTIN [Suspect]
     Route: 042
     Dates: start: 20130612, end: 20130703
  3. TYLENOL [Concomitant]
     Indication: PREMEDICATION
     Route: 048
     Dates: start: 20130508
  4. BENADRYL (CANADA) [Concomitant]
     Indication: PREMEDICATION
     Route: 048
     Dates: start: 20130508
  5. DEXAMETHASONE [Concomitant]
  6. METFORMIN [Concomitant]
  7. ACETYLSALICYLIC ACID (ASA) [Concomitant]
  8. PANTOLOC [Concomitant]

REACTIONS (4)
  - Neutrophil count decreased [Unknown]
  - Pneumonia [Not Recovered/Not Resolved]
  - Drug ineffective [Unknown]
  - Disease progression [Not Recovered/Not Resolved]
